FAERS Safety Report 10133593 (Version 1)
Quarter: 2014Q2

REPORT INFORMATION
  Report Type: Spontaneous
  Country: US (occurrence: US)
  Receive Date: 20140428
  Receipt Date: 20140428
  Transmission Date: 20141212
  Serious: No
  Sender: FDA-Public Use
  Company Number: US-GILEAD-2014-0100690

PATIENT
  Age: 77 Year
  Sex: Female

DRUGS (13)
  1. LETAIRIS [Suspect]
     Indication: PULMONARY HYPERTENSION
     Dosage: 10 MG, QD
     Route: 065
     Dates: start: 20130923
  2. HYDROCODONE [Concomitant]
  3. LOPRESSOR [Concomitant]
  4. SERTRALINE [Concomitant]
  5. VITAMIN E                          /00110501/ [Concomitant]
  6. MULTIVITAMIN                       /07504101/ [Concomitant]
  7. SEREVENT [Concomitant]
  8. FLOVENT HFA [Concomitant]
  9. SINGULAIR [Concomitant]
  10. COUMADIN                           /00014802/ [Concomitant]
  11. NEXIUM                             /01479302/ [Concomitant]
  12. ACCUPRIL [Concomitant]
  13. FUROSEMIDE [Concomitant]

REACTIONS (1)
  - Diarrhoea [Not Recovered/Not Resolved]
